FAERS Safety Report 4711897-X (Version None)
Quarter: 2005Q2

REPORT INFORMATION
  Report Type: 
  Country: None (occurrence: None)
  Receive Date: 20050629
  Receipt Date: 20050505
  Transmission Date: 20051028
  Serious: No
  Sender: FDA-Public Use
  Company Number: 05P-163-0299897-00

PATIENT
  Age: 79 Year
  Sex: Female

DRUGS (4)
  1. HUMIRA [Suspect]
     Indication: RHEUMATOID ARTHRITIS
     Dosage: 40 MG, 1 IN 2 WK, SUBCUTANEOUS
     Route: 058
     Dates: start: 20050301, end: 20050415
  2. LABETALOL [Concomitant]
  3. ATENOLOL [Concomitant]
  4. AMLODIPINE BESYLATE [Concomitant]

REACTIONS (2)
  - DRUG INEFFECTIVE [None]
  - NASOPHARYNGITIS [None]
